FAERS Safety Report 16465870 (Version 8)
Quarter: 2019Q4

REPORT INFORMATION
  Report Type: Spontaneous
  Country: US (occurrence: US)
  Receive Date: 20190621
  Receipt Date: 20191216
  Transmission Date: 20200122
  Serious: Yes (Hospitalization)
  Sender: FDA-Public Use
  Company Number: US-ACTELION-A-NJ2019-192090

PATIENT
  Age: 79 Year
  Sex: Male
  Weight: 99.77 kg

DRUGS (6)
  1. UPTRAVI [Suspect]
     Active Substance: SELEXIPAG
     Indication: PULMONARY ARTERIAL HYPERTENSION
     Dosage: 1200 MCG, BID
     Route: 048
     Dates: start: 20190805
  2. UPTRAVI [Suspect]
     Active Substance: SELEXIPAG
     Dosage: 400 MCG, BID
     Route: 048
     Dates: start: 20190607
  3. UPTRAVI [Suspect]
     Active Substance: SELEXIPAG
     Dosage: 1000 MCG, BID
     Route: 048
     Dates: start: 201908
  4. UPTRAVI [Suspect]
     Active Substance: SELEXIPAG
     Dosage: 600 MCG, BID
     Route: 048
  5. UPTRAVI [Suspect]
     Active Substance: SELEXIPAG
     Dosage: 800 MCG, BID
     Route: 048
     Dates: start: 20190621
  6. OPSUMIT [Concomitant]
     Active Substance: MACITENTAN
     Indication: PULMONARY ARTERIAL HYPERTENSION

REACTIONS (17)
  - Pain [Unknown]
  - Urinary retention [Unknown]
  - Vision blurred [Unknown]
  - Presyncope [Recovered/Resolved]
  - Nasal congestion [Unknown]
  - Adverse event [Unknown]
  - Feeling abnormal [Unknown]
  - Headache [Unknown]
  - Myalgia [Unknown]
  - Chills [Unknown]
  - Dizziness [Recovered/Resolved]
  - Taste disorder [Unknown]
  - Pneumonia [Unknown]
  - Pain in extremity [Unknown]
  - Arthralgia [Unknown]
  - Musculoskeletal pain [Unknown]
  - Eye pain [Unknown]

NARRATIVE: CASE EVENT DATE: 201906
